FAERS Safety Report 17391019 (Version 1)
Quarter: 2020Q1

REPORT INFORMATION
  Report Type: Spontaneous
  Country: CA (occurrence: CA)
  Receive Date: 20200207
  Receipt Date: 20200207
  Transmission Date: 20200409
  Serious: Yes (Other)
  Sender: FDA-Public Use
  Company Number: CA-TEVA-2020-CA-1180646

PATIENT
  Sex: Female
  Weight: 3 kg

DRUGS (1)
  1. ZOLEDRONIC ACID [Suspect]
     Active Substance: ZOLEDRONIC ACID
     Indication: PATHOLOGICAL FRACTURE
     Route: 042

REACTIONS (5)
  - Fibula fracture [Unknown]
  - Off label use [Unknown]
  - Tibia fracture [Unknown]
  - Product use in unapproved indication [Unknown]
  - Foot fracture [Unknown]
